FAERS Safety Report 4800489-X (Version None)
Quarter: 2005Q4

REPORT INFORMATION
  Report Type: 
  Country: None (occurrence: None)
  Receive Date: 20051003
  Receipt Date: 20050428
  Transmission Date: 20060501
  Serious: Yes (Other)
  Sender: FDA-Public Use
  Company Number: MED000145

PATIENT
  Age: 15 Year
  Sex: Male

DRUGS (3)
  1. LACTATED RINGER'S [Suspect]
     Indication: FLUID REPLACEMENT
     Dosage: 500 CC; IV
     Route: 042
  2. ACETAMINOPHEN [Concomitant]
  3. SUCRALFATE [Concomitant]

REACTIONS (2)
  - CHEST PAIN [None]
  - EYELID OEDEMA [None]
